FAERS Safety Report 14435830 (Version 1)
Quarter: 2018Q1

REPORT INFORMATION
  Report Type: Spontaneous
  Country: US (occurrence: US)
  Receive Date: 20180124
  Receipt Date: 20180124
  Transmission Date: 20180509
  Serious: No
  Sender: FDA-Public Use
  Company Number: None

PATIENT
  Age: 58 Year
  Sex: Female
  Weight: 112.5 kg

DRUGS (5)
  1. METHYPHENIDATE ER [Suspect]
     Active Substance: METHYLPHENIDATE
     Indication: ATTENTION DEFICIT/HYPERACTIVITY DISORDER
     Dosage: ?          QUANTITY:1 TABLET(S);?
     Route: 048
     Dates: start: 20171201
  2. FISH OIL [Concomitant]
     Active Substance: FISH OIL
  3. CALCIUM CITRATE +D3 [Concomitant]
  4. DULOXETINE HCI DR [Concomitant]
  5. ANASTROZOLE. [Concomitant]
     Active Substance: ANASTROZOLE

REACTIONS (7)
  - Palpitations [None]
  - Product size issue [None]
  - Somnolence [None]
  - Dizziness [None]
  - Product substitution issue [None]
  - Headache [None]
  - Apathy [None]

NARRATIVE: CASE EVENT DATE: 20171201
